FAERS Safety Report 6667083-X (Version None)
Quarter: 2010Q2

REPORT INFORMATION
  Report Type: 
  Country: None (occurrence: None)
  Receive Date: 20100402
  Receipt Date: 20100402
  Transmission Date: 20101027
  Serious: Yes (Hospitalization)
  Sender: FDA-Public Use
  Company Number: None

PATIENT
  Age: 82 Year
  Sex: Male
  Weight: 103 kg

DRUGS (2)
  1. OLANZAPINE [Suspect]
     Indication: DEMENTIA
  2. CARBAMAZEPINE [Suspect]

REACTIONS (1)
  - STEVENS-JOHNSON SYNDROME [None]
